FAERS Safety Report 6816829-6 (Version None)
Quarter: 2010Q3

REPORT INFORMATION
  Report Type: 
  Country: None (occurrence: None)
  Receive Date: 20100706
  Receipt Date: 20100701
  Transmission Date: 20110219
  Serious: Yes (Other)
  Sender: FDA-Public Use
  Company Number: US-ASTRAZENECA-2007UW21657

PATIENT
  Age: 550 Month
  Sex: Female

DRUGS (25)
  1. SEROQUEL [Suspect]
     Indication: ANXIETY
     Dosage: 200 MG - 100 MG
     Route: 048
     Dates: start: 20020201, end: 20070401
  2. SEROQUEL [Suspect]
     Indication: DEPRESSION
     Dosage: 200 MG - 100 MG
     Route: 048
     Dates: start: 20020201, end: 20070401
  3. SEROQUEL [Suspect]
     Indication: BIPOLAR DISORDER
     Dosage: 200 MG - 100 MG
     Route: 048
     Dates: start: 20020201, end: 20070401
  4. SEROQUEL [Suspect]
     Indication: SLEEP DISORDER
     Dosage: 200 MG - 100 MG
     Route: 048
     Dates: start: 20020201, end: 20070401
  5. SEROQUEL [Suspect]
     Indication: SCHIZOPHRENIA
     Dosage: 200 MG - 100 MG
     Route: 048
     Dates: start: 20020201, end: 20070401
  6. SEROQUEL [Suspect]
     Dosage: 50 TO 400 MG
     Route: 048
     Dates: start: 20020802
  7. SEROQUEL [Suspect]
     Dosage: 50 TO 400 MG
     Route: 048
     Dates: start: 20020802
  8. SEROQUEL [Suspect]
     Dosage: 50 TO 400 MG
     Route: 048
     Dates: start: 20020802
  9. SEROQUEL [Suspect]
     Dosage: 50 TO 400 MG
     Route: 048
     Dates: start: 20020802
  10. SEROQUEL [Suspect]
     Dosage: 50 TO 400 MG
     Route: 048
     Dates: start: 20020802
  11. SEROQUEL [Suspect]
     Dosage: 100-700 MG
     Route: 048
     Dates: start: 20020226, end: 20050101
  12. SEROQUEL [Suspect]
     Dosage: 100-700 MG
     Route: 048
     Dates: start: 20020226, end: 20050101
  13. SEROQUEL [Suspect]
     Dosage: 100-700 MG
     Route: 048
     Dates: start: 20020226, end: 20050101
  14. SEROQUEL [Suspect]
     Dosage: 100-700 MG
     Route: 048
     Dates: start: 20020226, end: 20050101
  15. SEROQUEL [Suspect]
     Dosage: 100-700 MG
     Route: 048
     Dates: start: 20020226, end: 20050101
  16. PROZAC [Concomitant]
     Dates: start: 20061128
  17. GEODON [Concomitant]
     Dates: start: 20061128
  18. LIPITOR [Concomitant]
     Dates: start: 20060216
  19. SYNTHROID [Concomitant]
     Dates: start: 20060216
  20. ZETIA [Concomitant]
     Dates: start: 20060216
  21. NEXIUM [Concomitant]
     Dates: start: 20060216
  22. RISPERDAL [Concomitant]
     Indication: DEPRESSION
     Dates: start: 20010712
  23. RISPERDAL [Concomitant]
     Indication: BIPOLAR DISORDER
     Dates: start: 20010712
  24. RISPERDAL [Concomitant]
     Indication: SCHIZOPHRENIA
     Dates: start: 20010712
  25. ABILIFY [Concomitant]
     Dates: start: 20070828

REACTIONS (8)
  - BLOOD CHOLESTEROL INCREASED [None]
  - BLOOD TRIGLYCERIDES INCREASED [None]
  - CHOLELITHIASIS [None]
  - DIABETIC COMPLICATION [None]
  - DIABETIC KETOACIDOSIS [None]
  - HYPERLIPIDAEMIA [None]
  - PANCREATITIS [None]
  - TYPE 2 DIABETES MELLITUS [None]
